FAERS Safety Report 8312280-0 (Version None)
Quarter: 2012Q2

REPORT INFORMATION
  Report Type: 
  Country: None (occurrence: None)
  Receive Date: 20120425
  Receipt Date: 20120420
  Transmission Date: 20120825
  Serious: Yes (Other)
  Sender: FDA-Public Use
  Company Number: GR-PFIZER INC-2012095742

PATIENT
  Age: 53 Year
  Sex: Male

DRUGS (1)
  1. SUTENT [Suspect]
     Indication: PANCREATIC NEUROENDOCRINE TUMOUR
     Dosage: 50 MG, 1X/DAY
     Route: 048
     Dates: start: 20120403

REACTIONS (4)
  - HAEMATOTOXICITY [None]
  - INCORRECT DOSE ADMINISTERED [None]
  - HYPOCALCAEMIA [None]
  - WHITE BLOOD CELL COUNT DECREASED [None]
